FAERS Safety Report 20740350 (Version 4)
Quarter: 2025Q1

REPORT INFORMATION
  Report Type: Spontaneous
  Country: US (occurrence: US)
  Receive Date: 20220422
  Receipt Date: 20250318
  Transmission Date: 20250408
  Serious: Yes (Other)
  Sender: PFIZER
  Company Number: US-PFIZER INC-202200133358

PATIENT
  Age: 63 Year
  Sex: Female

DRUGS (4)
  1. IBRANCE [Suspect]
     Active Substance: PALBOCICLIB
     Dates: start: 20211005
  2. IBRANCE [Suspect]
     Active Substance: PALBOCICLIB
     Dates: start: 20211011
  3. IBRANCE [Suspect]
     Active Substance: PALBOCICLIB
     Dates: start: 20220124
  4. IBRANCE [Suspect]
     Active Substance: PALBOCICLIB

REACTIONS (10)
  - Thrombocytopenia [Unknown]
  - Alopecia [Unknown]
  - Hair disorder [Unknown]
  - Hot flush [Unknown]
  - Fatigue [Unknown]
  - Alopecia [Unknown]
  - Chromaturia [Unknown]
  - Nasopharyngitis [Unknown]
  - Anaemia [Unknown]
  - White blood cell count decreased [Unknown]

NARRATIVE: CASE EVENT DATE: 20211001
